FAERS Safety Report 5604661-0 (Version None)
Quarter: 2008Q1

REPORT INFORMATION
  Report Type: 
  Country: None (occurrence: None)
  Receive Date: 20080124
  Receipt Date: 20080124
  Transmission Date: 20080703
  Serious: No
  Sender: FDA-Public Use
  Company Number: None

PATIENT
  Sex: Male

DRUGS (1)
  1. LIPITOR [Suspect]

REACTIONS (5)
  - AMYOTROPHIC LATERAL SCLEROSIS [None]
  - DYSPHONIA [None]
  - MUSCLE SPASMS [None]
  - PERONEAL NERVE PALSY [None]
  - TOTAL LUNG CAPACITY DECREASED [None]
